FAERS Safety Report 21292872 (Version 2)
Quarter: 2022Q4

REPORT INFORMATION
  Report Type: Spontaneous
  Country: FR (occurrence: FR)
  Receive Date: 20220905
  Receipt Date: 20221118
  Transmission Date: 20230112
  Serious: Yes (Hospitalization)
  Sender: FDA-Public Use
  Company Number: None

PATIENT
  Age: 82 Year
  Sex: Male

DRUGS (12)
  1. ALPRAZOLAM [Suspect]
     Active Substance: ALPRAZOLAM
     Indication: Anxiety
     Dosage: UNIT DOSE : 0.38 MG , FREQUENCY TIME : 1 DAY  , THERAPY START DATE : ASKU
     Dates: end: 20220614
  2. PINAVERIUM BROMIDE [Suspect]
     Active Substance: PINAVERIUM BROMIDE
     Indication: Diverticulum
     Dosage: PINAVERIUM (BROMURE DE) , UNIT DOSE : 300 MG , FREQUENCY TIME : 1 DAY , THERAPY START DATE : ASKU
     Dates: end: 20220618
  3. LANSOPRAZOLE [Suspect]
     Active Substance: LANSOPRAZOLE
     Indication: Gastritis
     Dosage: UNIT DOSE :1 DF  , FREQUENCY TIME :  1 DAY ,   THERAPY START DATE : ASKU
     Dates: end: 20220620
  4. ZESTORETIC [Suspect]
     Active Substance: HYDROCHLOROTHIAZIDE\LISINOPRIL
     Indication: Hypertension
     Dosage: 20 MG/12.5 MG, SCORED TABLET ,UNIT DOSE : 1 DF  , FREQUENCY TIME :  1 DAY  THERAPY START DATE : ASKU
     Dates: end: 20220618
  5. ACTIVATED CHARCOAL\SACCHAROMYCES CEREVISIAE [Suspect]
     Active Substance: ACTIVATED CHARCOAL\SACCHAROMYCES CEREVISIAE
     Indication: Diverticulum
     Dosage: UNIT DOSE : 3 DF , FREQUENCY TIME :  1 DAY,   THERAPY START DATE : ASKU
     Dates: end: 20220620
  6. BILASTINE [Suspect]
     Active Substance: BILASTINE
     Indication: Hypersensitivity
     Dosage: FORM STRENGTH : 20MG , UNIT DOSE : 1 DF , FREQUENCY TIME : 1 DAY   THERAPY START DATE : ASKU
     Dates: end: 20220618
  7. COMIRNATY [Suspect]
     Active Substance: TOZINAMERAN
     Indication: COVID-19 immunisation
     Dosage: R2, 30 MICROGRAMS/DOSE, DISPERSION FOR INJECTION. MRNA (MODIFIED NUCLEOSIDE) VACCINE AGAINST COVID-1
     Dates: start: 20210223, end: 20220427
  8. METEOSPASMYL (ALVERINE CITRATE\DIMETHICONE) [Suspect]
     Active Substance: ALVERINE CITRATE\DIMETHICONE
     Indication: Diverticulum
     Dosage: UNIT DOSE :3 DF  , FREQUENCY TIME : 1 DAY   THERAPY START DATE : ASKU
     Dates: end: 20220618
  9. MODERNA COVID-19 VACCINE [Suspect]
     Active Substance: ELASOMERAN
     Indication: COVID-19 immunisation
     Dosage: VACCIN CONTRE LA COVID-19 MODERNA
     Dates: start: 20220115, end: 20220115
  10. FOLIC ACID [Concomitant]
     Active Substance: FOLIC ACID
     Indication: Product used for unknown indication
     Dosage: ACIDE FOLIQUE , UNIT DOSE : 5 MG , FREQUENCY TIME : 1 HOUR   THERAPY START DATE : ASKU
  11. POTASSIUM CHLORIDE [Concomitant]
     Active Substance: POTASSIUM CHLORIDE
     Indication: Product used for unknown indication
     Dosage: UNIT DOSE : 1800 MG  , FREQUENCY TIME :  1 DAY   THERAPY START DATE : ASKU
  12. ACETAMINOPHEN [Concomitant]
     Active Substance: ACETAMINOPHEN
     Indication: Product used for unknown indication
     Dosage: UNIT DOSE : 1 DF  , FREQUENCY TIME :  1 AS REQUIRED  THERAPY START DATE : ASKU

REACTIONS (4)
  - Myositis [Recovered/Resolved]
  - Pancytopenia [Recovered/Resolved]
  - Lupus-like syndrome [Recovering/Resolving]
  - Myocarditis [Recovered/Resolved]

NARRATIVE: CASE EVENT DATE: 20220401
